FAERS Safety Report 8317092-X (Version None)
Quarter: 2012Q2

REPORT INFORMATION
  Report Type: 
  Country: None (occurrence: None)
  Receive Date: 20120427
  Receipt Date: 20120423
  Transmission Date: 20120825
  Serious: Yes (Hospitalization)
  Sender: FDA-Public Use
  Company Number: ES-PFIZER INC-2012100968

PATIENT
  Age: 49 Year
  Sex: Male

DRUGS (8)
  1. MYCOPHENOLATE MOFETIL (CELLCEPT) [Interacting]
     Dosage: 1.25 MG, 1X/DAY
  2. OMEPRAZOLE [Concomitant]
     Indication: PROPHYLAXIS
     Dosage: 20 MG, UNK
     Route: 048
     Dates: start: 20091101
  3. LEUCOVORIN CALCIUM [Concomitant]
  4. RAPAMUNE [Suspect]
     Indication: RENAL TRANSPLANT
     Dosage: 7 MG, 1X/DAY
     Route: 048
     Dates: start: 20091101
  5. PREDNISOLONE [Interacting]
     Indication: RENAL TRANSPLANT
     Dosage: 15 MG, 1X/DAY
     Route: 048
     Dates: start: 20091101
  6. MYCOPHENOLATE MOFETIL (CELLCEPT) [Interacting]
     Indication: RENAL TRANSPLANT
     Dosage: 2 G, 1X/DAY
     Route: 048
     Dates: start: 20091101
  7. SEPTRA [Interacting]
     Indication: PROPHYLAXIS
     Dosage: UNK
     Route: 048
     Dates: start: 20091101
  8. CARDURA [Concomitant]
     Indication: HYPERTENSION
     Dosage: 16 MG, 1X/DAY
     Route: 048
     Dates: start: 20091101

REACTIONS (2)
  - DIARRHOEA [None]
  - DRUG INTERACTION [None]
